FAERS Safety Report 18586928 (Version 1)
Quarter: 2020Q4

REPORT INFORMATION
  Report Type: Report from Study
  Country: DE (occurrence: DE)
  Receive Date: 20201207
  Receipt Date: 20201207
  Transmission Date: 20210114
  Serious: Yes (Other)
  Sender: FDA-Public Use
  Company Number: DE-AMGEN-DEUNI2018026787

PATIENT
  Age: 69 Year
  Sex: Male
  Weight: 104 kg

DRUGS (17)
  1. FLUOROURACIL. [Suspect]
     Active Substance: FLUOROURACIL
     Dosage: 907 MILLIGRAM
     Route: 040
     Dates: start: 20170510
  2. FLUOROURACIL. [Suspect]
     Active Substance: FLUOROURACIL
     Dosage: 5444 MILLIGRAM
     Route: 042
     Dates: start: 20170912
  3. FOLINIC ACID [Suspect]
     Active Substance: LEUCOVORIN
     Dosage: 907 MILLIGRAM
     Route: 065
     Dates: start: 20170510
  4. FLUOROURACIL. [Suspect]
     Active Substance: FLUOROURACIL
     Dosage: 907 MILLIGRAM
     Route: 040
     Dates: start: 20170912
  5. FLUOROURACIL. [Suspect]
     Active Substance: FLUOROURACIL
     Dosage: 5444 MILLIGRAM
     Route: 042
     Dates: start: 20170510
  6. OXALIPLATIN. [Suspect]
     Active Substance: OXALIPLATIN
     Dosage: 193 MILLIGRAM
     Route: 065
     Dates: start: 20170510
  7. DEXAMETHASON [Concomitant]
     Active Substance: DEXAMETHASONE
     Indication: PROPHYLAXIS
     Dosage: 2-8 MG PER CYCLE, UNK
     Route: 048
     Dates: start: 20170425
  8. SALBEITEE [Concomitant]
     Indication: PROPHYLAXIS
     Dosage: 6 QD UNK
     Route: 048
     Dates: start: 20170425
  9. FOLINIC ACID [Suspect]
     Active Substance: LEUCOVORIN
     Indication: COLORECTAL CANCER METASTATIC
     Dosage: 893 MILLIGRAM
     Route: 065
     Dates: start: 20170425
  10. OXALIPLATIN. [Suspect]
     Active Substance: OXALIPLATIN
     Indication: COLORECTAL CANCER METASTATIC
     Dosage: 190 MILLIGRAM
     Route: 065
     Dates: start: 20170425
  11. GRANISETRON [Concomitant]
     Active Substance: GRANISETRON
     Indication: PROPHYLAXIS
     Dosage: 1 MILLIGRAM, PER CYCLE UNK
     Route: 048
     Dates: start: 20170426
  12. FLUOROURACIL. [Suspect]
     Active Substance: FLUOROURACIL
     Dosage: 907 MILLIGRAM
     Route: 042
     Dates: start: 20170607
  13. FLUOROURACIL. [Suspect]
     Active Substance: FLUOROURACIL
     Dosage: 5444 MILLIGRAM
     Route: 040
     Dates: start: 20170607
  14. MINOCYCLINE [Concomitant]
     Active Substance: MINOCYCLINE HYDROCHLORIDE
     Indication: PROPHYLAXIS
     Dosage: 40 MG, QD
     Route: 048
     Dates: start: 20170428, end: 20170910
  15. PANITUMUMAB [Suspect]
     Active Substance: PANITUMUMAB
     Indication: COLORECTAL CANCER METASTATIC
     Dosage: 648 MILLIGRAM
     Route: 042
     Dates: start: 20170510
  16. FLUOROURACIL. [Suspect]
     Active Substance: FLUOROURACIL
     Indication: COLORECTAL CANCER METASTATIC
     Dosage: 893 MILLIGRAM
     Route: 040
     Dates: start: 20170425
  17. FLUOROURACIL. [Suspect]
     Active Substance: FLUOROURACIL
     Dosage: 5357 MILLIGRAM
     Route: 042
     Dates: start: 20170425

REACTIONS (2)
  - Dermatitis allergic [Recovered/Resolved]
  - Leukopenia [Recovered/Resolved]

NARRATIVE: CASE EVENT DATE: 20170516
